FAERS Safety Report 16706067 (Version 8)
Quarter: 2019Q4

REPORT INFORMATION
  Report Type: Spontaneous
  Country: US (occurrence: US)
  Receive Date: 20190815
  Receipt Date: 20191023
  Transmission Date: 20200122
  Serious: No
  Sender: FDA-Public Use
  Company Number: US-PFIZER INC-2019345830

PATIENT
  Age: 51 Year
  Sex: Female
  Weight: 113.4 kg

DRUGS (2)
  1. LYRICA [Suspect]
     Active Substance: PREGABALIN
     Indication: NEUROPATHY PERIPHERAL
     Dosage: 75 MG, 3X/DAY
     Route: 048
     Dates: start: 201903
  2. LYRICA [Suspect]
     Active Substance: PREGABALIN
     Dosage: 100 MG, 3X/DAY (RECENTLY INCREASED TO 100 MG)
     Route: 048

REACTIONS (3)
  - Burning sensation [Unknown]
  - Blood pressure increased [Unknown]
  - Pain [Unknown]
